FAERS Safety Report 16559573 (Version 1)
Quarter: 2019Q3

REPORT INFORMATION
  Report Type: Spontaneous
  Country: BR (occurrence: BR)
  Receive Date: 20190711
  Receipt Date: 20190711
  Transmission Date: 20191004
  Serious: Yes (Disabling)
  Sender: FDA-Public Use
  Company Number: IND-BR-009507513-1907BRA003310

PATIENT
  Sex: Female

DRUGS (1)
  1. HETORI [Suspect]
     Active Substance: ETORICOXIB
     Indication: LIGAMENT PAIN
     Dosage: UNK
     Route: 048

REACTIONS (4)
  - Ulcer [Unknown]
  - Vulvovaginal discomfort [Unknown]
  - Vaginal lesion [Unknown]
  - Wound complication [Unknown]
